FAERS Safety Report 11661199 (Version 1)
Quarter: 2015Q4

REPORT INFORMATION
  Report Type: Spontaneous
  Country: FR (occurrence: FR)
  Receive Date: 20151026
  Receipt Date: 20151026
  Transmission Date: 20160304
  Serious: Yes (Other)
  Sender: FDA-Public Use
  Company Number: FR-LEO PHARMA-237728

PATIENT
  Age: 72 Year
  Sex: Female

DRUGS (1)
  1. PICATO [Suspect]
     Active Substance: INGENOL MEBUTATE
     Indication: ACTINIC KERATOSIS
     Route: 061
     Dates: start: 20150806, end: 20150808

REACTIONS (6)
  - Ophthalmoplegia [Not Recovered/Not Resolved]
  - Application site scab [Not Recovered/Not Resolved]
  - Application site burn [Not Recovered/Not Resolved]
  - Application site oedema [Not Recovered/Not Resolved]
  - Diplopia [Not Recovered/Not Resolved]
  - Drug administered at inappropriate site [Unknown]

NARRATIVE: CASE EVENT DATE: 2015
